FAERS Safety Report 6979217-8 (Version None)
Quarter: 2010Q3

REPORT INFORMATION
  Report Type: 
  Country: None (occurrence: None)
  Receive Date: 20100913
  Receipt Date: 20100831
  Transmission Date: 20110219
  Serious: Yes (Hospitalization, Other)
  Sender: FDA-Public Use
  Company Number: US-ELI_LILLY_AND_COMPANY-US201005007771

PATIENT
  Sex: Female

DRUGS (19)
  1. FORTEO [Suspect]
     Indication: OSTEOPOROSIS
     Dosage: 20 UG, DAILY (1/D)
     Dates: start: 20090916
  2. FORTEO [Suspect]
     Dosage: 20 UG, DAILY (1/D)
  3. BENZONATATE [Concomitant]
     Dosage: 100 MG, UNK
  4. LEVOTHYROXINE [Concomitant]
     Dosage: 75 UG, UNK
  5. OMEPRAZOLE [Concomitant]
     Dosage: 20 MG, UNK
  6. SINGULAIR [Concomitant]
     Dosage: 10 MG, UNK
  7. DOXEPIN HCL [Concomitant]
     Dosage: 40 MG, UNK
  8. ISOSORBIDE MONONITRATE [Concomitant]
     Dosage: 30 MG, UNK
  9. FISH OIL [Concomitant]
  10. ASPIRIN [Concomitant]
  11. COREG [Concomitant]
     Dosage: 3.125 MG, UNK
  12. PRESERVISION LUTEIN EYE VITA.+MIN.SUP.SOFTG. [Concomitant]
  13. SIMVASTATIN [Concomitant]
     Dosage: 40 MG, UNK
  14. FEXOFENADINE HCL [Concomitant]
     Dosage: 180 MG, UNK
  15. LISINOPRIL [Concomitant]
     Dosage: 10 MG, UNK
  16. PLAVIX [Concomitant]
     Dosage: 75 MG, UNK
  17. PANTOPRAZOLE [Concomitant]
     Dosage: 40 MG, UNK
  18. FLUOXETINE [Concomitant]
     Dosage: 40 MG, UNK
  19. OSCAL /00108001/ [Concomitant]

REACTIONS (9)
  - DYSPNOEA [None]
  - FALL [None]
  - HOSPITALISATION [None]
  - LOSS OF CONSCIOUSNESS [None]
  - MYOCARDIAL INFARCTION [None]
  - NERVOUSNESS [None]
  - PULMONARY OEDEMA [None]
  - VISUAL IMPAIRMENT [None]
  - WEIGHT LOSS POOR [None]
